FAERS Safety Report 13779368 (Version 1)
Quarter: 2017Q3

REPORT INFORMATION
  Report Type: Spontaneous
  Country: US (occurrence: US)
  Receive Date: 20170721
  Receipt Date: 20170721
  Transmission Date: 20171127
  Serious: No
  Sender: FDA-Public Use
  Company Number: US-PFIZER INC-2015054658

PATIENT
  Age: 60 Year
  Sex: Female
  Weight: 122 kg

DRUGS (2)
  1. PREMARIN [Suspect]
     Active Substance: ESTROGENS, CONJUGATED
     Indication: VULVOVAGINAL DRYNESS
     Dosage: 1 G, 2X/WEEK
  2. PREMARIN [Suspect]
     Active Substance: ESTROGENS, CONJUGATED
     Indication: VAGINAL DISORDER
     Dosage: USING THE LOWEST DOSE ON THE APPLICATOR, WEEKLY

REACTIONS (2)
  - Vaginal odour [Unknown]
  - Intentional product misuse [Unknown]
